FAERS Safety Report 6333336-8 (Version None)
Quarter: 2009Q3

REPORT INFORMATION
  Report Type: 
  Country: None (occurrence: None)
  Receive Date: 20090828
  Receipt Date: 20080910
  Transmission Date: 20100115
  Serious: No
  Sender: FDA-Public Use
  Company Number: A0747066A

PATIENT
  Age: 80 Year
  Sex: Female

DRUGS (5)
  1. BECONASE [Suspect]
     Dosage: 84MCG TWICE PER DAY
     Route: 045
     Dates: start: 20050101, end: 20080903
  2. DILTIAZEM [Concomitant]
  3. LIPITOR [Concomitant]
  4. ALUPENT [Concomitant]
  5. AZMACORT [Concomitant]

REACTIONS (3)
  - DRUG INEFFECTIVE [None]
  - NASAL INFLAMMATION [None]
  - RHINALGIA [None]
